FAERS Safety Report 11464509 (Version 1)
Quarter: 2015Q3

REPORT INFORMATION
  Report Type: Spontaneous
  Country: US (occurrence: US)
  Receive Date: 20150831
  Receipt Date: 20150831
  Transmission Date: 20151125
  Serious: No
  Sender: FDA-Public Use
  Company Number: US-ELI_LILLY_AND_COMPANY-US201106004524

PATIENT
  Age: 49 Year
  Sex: Female

DRUGS (14)
  1. CYMBALTA [Suspect]
     Active Substance: DULOXETINE HYDROCHLORIDE
     Dosage: 30 MG, QD
  2. ANTARA [Concomitant]
     Active Substance: FENOFIBRATE
  3. VITAMIN B12 [Concomitant]
     Active Substance: CYANOCOBALAMIN
  4. FOLATE [Concomitant]
     Active Substance: FOLATE SODIUM
  5. CYMBALTA [Suspect]
     Active Substance: DULOXETINE HYDROCHLORIDE
     Indication: DEPRESSION
     Dosage: 60 MG, QD
     Dates: start: 201102
  6. SINGULAIR [Concomitant]
     Active Substance: MONTELUKAST SODIUM
  7. XANAX                                   /USA/ [Concomitant]
  8. ATIVAN [Concomitant]
     Active Substance: LORAZEPAM
  9. ZYRETIC [Concomitant]
  10. ADVAIR HFA [Concomitant]
     Active Substance: FLUTICASONE PROPIONATE\SALMETEROL XINAFOATE
  11. CALCIUM [Concomitant]
     Active Substance: CALCIUM
  12. CYMBALTA [Suspect]
     Active Substance: DULOXETINE HYDROCHLORIDE
     Dosage: 30 MG, QOD
  13. WELCHOL [Concomitant]
     Active Substance: COLESEVELAM HYDROCHLORIDE
  14. PROVENTIL                               /USA/ [Concomitant]

REACTIONS (15)
  - Influenza like illness [Unknown]
  - Hyperhidrosis [Unknown]
  - Drug withdrawal syndrome [Unknown]
  - Gait disturbance [Unknown]
  - Drug dose omission [Recovered/Resolved]
  - Sleep terror [Unknown]
  - Paraesthesia [Unknown]
  - Night sweats [Unknown]
  - Hot flush [Unknown]
  - Mitral valve prolapse [Unknown]
  - Pain [Unknown]
  - Feeling hot [Unknown]
  - Nightmare [Unknown]
  - Pruritus [Unknown]
  - Intentional product misuse [Recovered/Resolved]

NARRATIVE: CASE EVENT DATE: 201105
